FAERS Safety Report 8164086-3 (Version None)
Quarter: 2012Q1

REPORT INFORMATION
  Report Type: 
  Country: None (occurrence: None)
  Receive Date: 20120224
  Receipt Date: 20120216
  Transmission Date: 20120608
  Serious: Yes (Other)
  Sender: FDA-Public Use
  Company Number: BR-SHIRE-ALL1-2012-01013

PATIENT
  Age: 50 Year
  Sex: Female

DRUGS (1)
  1. MESALAMINE [Suspect]
     Dosage: 1 DF, 2X/DAY:BID
     Route: 048
     Dates: start: 20120203, end: 20120209

REACTIONS (2)
  - PRESYNCOPE [None]
  - DIZZINESS [None]
